FAERS Safety Report 12805216 (Version 2)
Quarter: 2016Q4

REPORT INFORMATION
  Report Type: Report from Study
  Country: US (occurrence: US)
  Receive Date: 20161004
  Receipt Date: 20161108
  Transmission Date: 20170207
  Serious: No
  Sender: FDA-Public Use
  Company Number: PHEH2016US025126

PATIENT
  Sex: Female

DRUGS (1)
  1. GILENYA [Suspect]
     Active Substance: FINGOLIMOD HYDROCHLORIDE
     Indication: RELAPSING-REMITTING MULTIPLE SCLEROSIS
     Dosage: UNK, QD
     Route: 048
     Dates: start: 20110201

REACTIONS (6)
  - Thyroid disorder [Unknown]
  - Band sensation [Unknown]
  - Weight decreased [Unknown]
  - Visual impairment [Unknown]
  - Fatigue [Unknown]
  - Panic attack [Unknown]
